FAERS Safety Report 14333697 (Version 2)
Quarter: 2019Q4

REPORT INFORMATION
  Report Type: Spontaneous
  Country: US (occurrence: US)
  Receive Date: 20171228
  Receipt Date: 20191218
  Transmission Date: 20200122
  Serious: Yes (Other)
  Sender: FDA-Public Use
  Company Number: US-PFIZER INC-2017552614

PATIENT
  Age: 57 Year
  Sex: Male

DRUGS (23)
  1. TAMSULOSIN [Concomitant]
     Active Substance: TAMSULOSIN
     Indication: LOWER URINARY TRACT SYMPTOMS
     Dosage: 0.4 MG, 1X/DAY
     Dates: start: 20151102, end: 201512
  2. ANDROGEL [Concomitant]
     Active Substance: TESTOSTERONE
     Indication: LOWER URINARY TRACT SYMPTOMS
     Dosage: 50 MG, (1%) 1X/DAY
     Dates: start: 20141020, end: 201411
  3. ANDROGEL [Concomitant]
     Active Substance: TESTOSTERONE
     Dosage: 50 MG, (1%) 1X/DAY
     Dates: start: 20150325, end: 201510
  4. TESTOSTERONE. [Concomitant]
     Active Substance: TESTOSTERONE
     Indication: URINARY TRACT OBSTRUCTION
     Dosage: 50 MG, (1%) 1X/DAY
     Dates: start: 20151007, end: 201512
  5. VIAGRA [Suspect]
     Active Substance: SILDENAFIL CITRATE
     Dosage: 100 MG, AS NEEDED
     Route: 048
     Dates: start: 20080604, end: 200812
  6. CIALIS [Suspect]
     Active Substance: TADALAFIL
     Dosage: 20 MG, AS NEEDED
     Route: 048
     Dates: start: 20090501, end: 20090723
  7. CIALIS [Suspect]
     Active Substance: TADALAFIL
     Dosage: 20 MG, AS NEEDED
     Route: 048
     Dates: start: 20090723, end: 20091018
  8. CIALIS [Suspect]
     Active Substance: TADALAFIL
     Dosage: 20 MG, AS NEEDED
     Route: 048
     Dates: start: 20090325, end: 20090501
  9. CIALIS [Suspect]
     Active Substance: TADALAFIL
     Dosage: 20 MG, AS NEEDED
     Route: 048
     Dates: start: 20091018, end: 20091228
  10. TAMSULOSIN [Concomitant]
     Active Substance: TAMSULOSIN
     Indication: BENIGN PROSTATIC HYPERPLASIA
     Dosage: 0.4 MG, 1X/DAY
     Dates: start: 20100920, end: 201312
  11. CIALIS [Suspect]
     Active Substance: TADALAFIL
     Indication: ERECTILE DYSFUNCTION
     Dosage: UNK
     Route: 048
     Dates: start: 200812, end: 201511
  12. CIALIS [Suspect]
     Active Substance: TADALAFIL
     Dosage: 20 MG, AS NEEDED
     Route: 048
     Dates: start: 20081216, end: 200903
  13. VIAGRA [Suspect]
     Active Substance: SILDENAFIL CITRATE
     Dosage: 100 MG, AS NEEDED
     Route: 048
     Dates: start: 20091016, end: 2010
  14. CIALIS [Suspect]
     Active Substance: TADALAFIL
     Dosage: 20 MG, AS NEEDED
     Route: 048
     Dates: start: 20100920, end: 20110111
  15. ANDROGEL [Concomitant]
     Active Substance: TESTOSTERONE
     Indication: BENIGN PROSTATIC HYPERPLASIA
     Dosage: 50 MG, (1%) 1X/DAY
     Dates: start: 20120908, end: 20131023
  16. TESTOSTERONE. [Concomitant]
     Active Substance: TESTOSTERONE
     Indication: LOWER URINARY TRACT SYMPTOMS
  17. VIAGRA [Suspect]
     Active Substance: SILDENAFIL CITRATE
     Indication: ERECTILE DYSFUNCTION
     Dosage: UNK
     Route: 048
     Dates: start: 200806, end: 2010
  18. CIALIS [Suspect]
     Active Substance: TADALAFIL
     Dosage: 10 MG, AS NEEDED
     Route: 048
     Dates: start: 20091228, end: 20100722
  19. ANDROGEL [Concomitant]
     Active Substance: TESTOSTERONE
     Dosage: 50 MG, (1%) 1X/DAY
     Dates: start: 20150101, end: 201502
  20. TAMSULOSIN [Concomitant]
     Active Substance: TAMSULOSIN
     Indication: URINARY TRACT OBSTRUCTION
     Dosage: 0.4 MG, 1X/DAY
     Dates: start: 20140306, end: 201507
  21. ANDROGEL [Concomitant]
     Active Substance: TESTOSTERONE
     Indication: URINARY TRACT OBSTRUCTION
     Dosage: 50 MG, (1%) 1X/DAY
     Dates: start: 20131023, end: 20141020
  22. TESTOSTERONE. [Concomitant]
     Active Substance: TESTOSTERONE
     Indication: BENIGN PROSTATIC HYPERPLASIA
     Dosage: 50 MG, (1%) 1X/DAY
     Dates: start: 20140710, end: 201408
  23. CIALIS [Suspect]
     Active Substance: TADALAFIL
     Dosage: 20 MG, AS NEEDED
     Route: 048
     Dates: start: 20100722, end: 20100920

REACTIONS (4)
  - Malignant melanoma in situ [Unknown]
  - Emotional distress [Unknown]
  - Malignant melanoma [Unknown]
  - Anxiety [Unknown]

NARRATIVE: CASE EVENT DATE: 20100223
